FAERS Safety Report 6000117-4 (Version None)
Quarter: 2008Q4

REPORT INFORMATION
  Report Type: 
  Country: None (occurrence: None)
  Receive Date: 20081211
  Receipt Date: 20081126
  Transmission Date: 20090506
  Serious: Yes (Other)
  Sender: FDA-Public Use
  Company Number: 2008S1021232

PATIENT
  Age: 83 Year
  Sex: Male

DRUGS (4)
  1. DOXYCYCLINE [Suspect]
     Indication: DEVICE RELATED INFECTION
  2. VANCOMYCIN [Suspect]
     Indication: DEVICE RELATED INFECTION
  3. MEROPENEM (MEROPENEM) [Suspect]
     Indication: DEVICE RELATED INFECTION
  4. PRISTINAMYCIN (PRISTINAMYCIN) [Suspect]
     Indication: DRUG USE FOR UNKNOWN INDICATION

REACTIONS (4)
  - LETHARGY [None]
  - MULTIPLE-DRUG RESISTANCE [None]
  - NAUSEA [None]
  - REFUSAL OF TREATMENT BY PATIENT [None]
